FAERS Safety Report 7802566-8 (Version None)
Quarter: 2011Q4

REPORT INFORMATION
  Report Type: 
  Country: None (occurrence: None)
  Receive Date: 20111007
  Receipt Date: 20110929
  Transmission Date: 20120403
  Serious: Yes (Hospitalization)
  Sender: FDA-Public Use
  Company Number: JP-GENZYME-RENA-1001260

PATIENT
  Sex: Female

DRUGS (1)
  1. RENAGEL [Suspect]
     Indication: HYPERPHOSPHATAEMIA
     Dosage: UNK
     Route: 048
     Dates: start: 20070816, end: 20110411

REACTIONS (4)
  - MELAENA [None]
  - LARGE INTESTINE PERFORATION [None]
  - CONSTIPATION [None]
  - ABDOMINAL PAIN LOWER [None]
